FAERS Safety Report 4579392-9 (Version None)
Quarter: 2005Q1

REPORT INFORMATION
  Report Type: 
  Country: None (occurrence: None)
  Receive Date: 20050209
  Receipt Date: 20050120
  Transmission Date: 20050727
  Serious: Yes (Other)
  Sender: FDA-Public Use
  Company Number: USA050188819

PATIENT
  Age: 67 Year
  Sex: Female
  Weight: 57 kg

DRUGS (4)
  1. HUMALOG [Suspect]
     Indication: DIABETES MELLITUS
     Dosage: 17 U DAY
  2. COZAAR [Concomitant]
  3. SYNTHROID [Concomitant]
  4. LANTUS [Concomitant]

REACTIONS (6)
  - BLINDNESS [None]
  - BODY HEIGHT DECREASED [None]
  - HYPERTENSION [None]
  - RETINAL DETACHMENT [None]
  - RETINAL VASCULAR DISORDER [None]
  - TREATMENT NONCOMPLIANCE [None]
